FAERS Safety Report 5115797-5 (Version None)
Quarter: 2006Q3

REPORT INFORMATION
  Report Type: 
  Country: None (occurrence: None)
  Receive Date: 20060927
  Receipt Date: 20060629
  Transmission Date: 20061208
  Serious: Yes (Hospitalization)
  Sender: FDA-Public Use
  Company Number: US-ROCHE-453666

PATIENT
  Age: 42 Year
  Sex: Female

DRUGS (8)
  1. PEGASYS [Suspect]
     Dosage: STRENGTH REPORTED AS 180 MCG. ROUTE REPORTED AS INJECTABLE (INJ).
     Route: 050
     Dates: start: 20060613, end: 20060627
  2. PEGASYS [Suspect]
     Dosage: STRENGTH REPORTED AS 180MCG/0.5CC. THERAPY MEDICATION REMAINED UNCHANGED AFTER RE-STARTING.
     Route: 050
     Dates: start: 20060722
  3. COPEGUS [Suspect]
     Dosage: DOSAGE REGIMEN REPORTED AS 3 AM, 2 PM.
     Route: 048
     Dates: start: 20060613, end: 20060627
  4. COPEGUS [Suspect]
     Dosage: THERAPY MEDICATION REMAINED UNCHANGED AFTER RESTARTING.
     Route: 048
     Dates: start: 20060722
  5. LAMICTAL [Concomitant]
     Indication: BIPOLAR DISORDER
     Dosage: APPROXIMATELY IN SEPTEMBER DOSE INCREASE FROM 50 MG TO 100 MG.
     Route: 048
  6. KLONOPIN [Concomitant]
     Indication: NERVOUSNESS
     Route: 048
  7. HYDROCHLOROTHIAZIDE/LISINOPRIL [Concomitant]
     Dosage: REPORTED AS HCTZ/LISINOPRIL.
     Route: 048
  8. KLOR-CON [Concomitant]

REACTIONS (10)
  - ANOREXIA [None]
  - ASTHENIA [None]
  - BIPOLAR DISORDER [None]
  - BLOOD PRESSURE DECREASED [None]
  - BLOOD URINE PRESENT [None]
  - DISTURBANCE IN ATTENTION [None]
  - DYSSTASIA [None]
  - FATIGUE [None]
  - IRRITABILITY [None]
  - SUICIDAL IDEATION [None]
